FAERS Safety Report 10078894 (Version 1)
Quarter: 2014Q2

REPORT INFORMATION
  Report Type: Report from Study
  Country: DE (occurrence: DE)
  Receive Date: 20140415
  Receipt Date: 20140415
  Transmission Date: 20141212
  Serious: Yes (Other)
  Sender: FDA-Public Use
  Company Number: DE-ABBVIE-14P-062-1223896-00

PATIENT
  Age: 40 Year
  Sex: Male

DRUGS (5)
  1. KALETRA [Suspect]
     Indication: HIV INFECTION
     Dates: start: 20020903
  2. COMBIVIR [Concomitant]
     Indication: PRODUCT USED FOR UNKNOWN INDICATION
  3. VIRAMUNE [Concomitant]
     Indication: PRODUCT USED FOR UNKNOWN INDICATION
  4. EPIVIR 3TC [Concomitant]
     Indication: PRODUCT USED FOR UNKNOWN INDICATION
  5. D4T [Concomitant]
     Indication: PRODUCT USED FOR UNKNOWN INDICATION

REACTIONS (1)
  - Kaposi^s sarcoma [Unknown]
